FAERS Safety Report 6111169-5 (Version None)
Quarter: 2009Q1

REPORT INFORMATION
  Report Type: 
  Country: None (occurrence: None)
  Receive Date: 20090311
  Receipt Date: 20080912
  Transmission Date: 20090719
  Serious: No
  Sender: FDA-Public Use
  Company Number: US-KINGPHARMUSA00001-K200801075

PATIENT
  Sex: Male

DRUGS (3)
  1. ALTACE [Suspect]
     Indication: HYPERTENSION
     Dosage: 2.5 MG, QD
     Route: 048
     Dates: start: 20080911
  2. CATAPRES                           /00171101/ [Concomitant]
     Indication: HYPERTENSION
     Dosage: UNK, QW
     Dates: start: 19980101
  3. INNOPRAN [Concomitant]
     Indication: BLOOD PRESSURE
     Dosage: 80 MG, QD
     Route: 048
     Dates: start: 19980101

REACTIONS (2)
  - ABDOMINAL DISCOMFORT [None]
  - DIZZINESS [None]
